FAERS Safety Report 12303026 (Version 2)
Quarter: 2020Q2

REPORT INFORMATION
  Report Type: Spontaneous
  Country: CA (occurrence: CA)
  Receive Date: 20160426
  Receipt Date: 20200507
  Transmission Date: 20200713
  Serious: Yes (Life-Threatening, Hospitalization)
  Sender: FDA-Public Use
  Company Number: CA-ROCHE-1746280

PATIENT
  Age: 49 Year
  Sex: Male
  Weight: 103 kg

DRUGS (6)
  1. RITUXAN [Suspect]
     Active Substance: RITUXIMAB
     Indication: MANTLE CELL LYMPHOMA
     Route: 042
  2. TREANDA [Suspect]
     Active Substance: BENDAMUSTINE HYDROCHLORIDE
     Indication: MANTLE CELL LYMPHOMA
     Route: 042
  3. TREANDA [Suspect]
     Active Substance: BENDAMUSTINE HYDROCHLORIDE
     Route: 042
  4. TREANDA [Suspect]
     Active Substance: BENDAMUSTINE HYDROCHLORIDE
     Route: 042
  5. ALLOPURINOL. [Concomitant]
     Active Substance: ALLOPURINOL
     Route: 065
  6. TREANDA [Suspect]
     Active Substance: BENDAMUSTINE HYDROCHLORIDE
     Route: 042

REACTIONS (11)
  - Hepatitis [Not Recovered/Not Resolved]
  - Nausea [Not Recovered/Not Resolved]
  - Rash [Not Recovered/Not Resolved]
  - Acute kidney injury [Not Recovered/Not Resolved]
  - Chills [Not Recovered/Not Resolved]
  - Pyrexia [Not Recovered/Not Resolved]
  - Feeling cold [Not Recovered/Not Resolved]
  - Malaise [Not Recovered/Not Resolved]
  - Rash maculo-papular [Not Recovered/Not Resolved]
  - Vomiting [Not Recovered/Not Resolved]
  - Anaphylactic reaction [Not Recovered/Not Resolved]
